FAERS Safety Report 6246728-2 (Version None)
Quarter: 2009Q2

REPORT INFORMATION
  Report Type: 
  Country: None (occurrence: None)
  Receive Date: 20090626
  Receipt Date: 20090623
  Transmission Date: 20091009
  Serious: Yes (Hospitalization)
  Sender: FDA-Public Use
  Company Number: FR-WYE-G03905309

PATIENT
  Sex: Male
  Weight: 55 kg

DRUGS (2)
  1. ADVIL [Suspect]
     Indication: PYREXIA
     Dosage: UNKNOWN
     Route: 048
     Dates: start: 20090405, end: 20090406
  2. DOLIPRANE [Concomitant]
     Indication: PYREXIA
     Dosage: UNKNOWN
     Route: 048
     Dates: start: 20090405, end: 20090406

REACTIONS (11)
  - ACTIVATED PARTIAL THROMBOPLASTIN TIME PROLONGED [None]
  - BLOOD FIBRINOGEN INCREASED [None]
  - COAGULATION FACTOR VII LEVEL DECREASED [None]
  - CONDITION AGGRAVATED [None]
  - HAEMATEMESIS [None]
  - HAEMOPTYSIS [None]
  - INFECTION [None]
  - LOBAR PNEUMONIA [None]
  - PLATELET COUNT DECREASED [None]
  - PNEUMOCOCCAL SEPSIS [None]
  - RENAL FAILURE ACUTE [None]
